FAERS Safety Report 8553053-3 (Version None)
Quarter: 2012Q3

REPORT INFORMATION
  Report Type: 
  Country: None (occurrence: None)
  Receive Date: 20120724
  Receipt Date: 20120724
  Transmission Date: 20120928
  Serious: Yes (Other)
  Sender: FDA-Public Use
  Company Number: None

PATIENT
  Age: 81 Year
  Sex: Male
  Weight: 104.3273 kg

DRUGS (4)
  1. PROAIR HFA [Suspect]
     Route: 055
  2. WARFARIN SODIUM [Suspect]
  3. LEVOTHYROXINE SODIUM [Suspect]
     Indication: TRI-IODOTHYRONINE DECREASED
     Dosage: 100 MG  TAB ONCE DALY ORAL, SEVEN CONSEC, DAY
     Route: 048
     Dates: start: 20120301
  4. PULMICORT FLEXHALER [Suspect]

REACTIONS (2)
  - DYSPNOEA [None]
  - PANIC REACTION [None]
